FAERS Safety Report 7688819-5 (Version None)
Quarter: 2011Q3

REPORT INFORMATION
  Report Type: 
  Country: None (occurrence: None)
  Receive Date: 20110817
  Receipt Date: 20110808
  Transmission Date: 20111222
  Serious: Yes (Hospitalization)
  Sender: FDA-Public Use
  Company Number: US-ASTRAZENECA-2011SE47276

PATIENT
  Age: 78 Year
  Sex: Female

DRUGS (5)
  1. RANITIDINE [Suspect]
     Route: 065
  2. PRILOSEC OTC [Suspect]
     Route: 048
  3. CALCIUM CARBONATE [Suspect]
     Route: 065
  4. NEXIUM [Suspect]
     Route: 048
  5. CALCIUM CARBONATE [Suspect]
     Route: 065

REACTIONS (4)
  - MEMORY IMPAIRMENT [None]
  - HIP ARTHROPLASTY [None]
  - OSTEOPOROSIS [None]
  - DYSPEPSIA [None]
